FAERS Safety Report 18996060 (Version 1)
Quarter: 2021Q1

REPORT INFORMATION
  Report Type: Spontaneous
  Country: US (occurrence: US)
  Receive Date: 20210310
  Receipt Date: 20210310
  Transmission Date: 20210420
  Serious: No
  Sender: FDA-Public Use
  Company Number: None

PATIENT
  Age: 40 Year
  Sex: Female

DRUGS (1)
  1. DIMETHYL FUM DR CAP  240MG [Suspect]
     Active Substance: DIMETHYL FUMARATE
     Route: 048
     Dates: start: 201001

REACTIONS (2)
  - Disease recurrence [None]
  - Gait disturbance [None]

NARRATIVE: CASE EVENT DATE: 20210310
